FAERS Safety Report 26211362 (Version 1)
Quarter: 2025Q4

REPORT INFORMATION
  Report Type: Spontaneous
  Country: EU (occurrence: EU)
  Receive Date: 20251230
  Receipt Date: 20251230
  Transmission Date: 20260118
  Serious: Yes (Hospitalization)
  Sender: ACCORD
  Company Number: None

PATIENT
  Age: 72 Year
  Sex: Female
  Weight: 62 kg

DRUGS (7)
  1. MITOMYCIN [Suspect]
     Active Substance: MITOMYCIN
     Indication: Anal squamous cell carcinoma
     Dosage: 2 CYCLES
     Dates: start: 20240917, end: 20241014
  2. PREDNISOLONE [Concomitant]
     Active Substance: PREDNISOLONE
  3. FUROSEMIDE [Concomitant]
     Active Substance: FUROSEMIDE
  4. LEVOTHYROXINE [Concomitant]
     Active Substance: LEVOTHYROXINE
  5. PAROXETINE [Concomitant]
     Active Substance: PAROXETINE
  6. LORAZEPAM [Concomitant]
     Active Substance: LORAZEPAM
  7. KARDEGIC [Concomitant]
     Active Substance: ASPIRIN DL-LYSINE

REACTIONS (2)
  - Pulmonary arterial hypertension [Not Recovered/Not Resolved]
  - Pulmonary veno-occlusive disease [Not Recovered/Not Resolved]

NARRATIVE: CASE EVENT DATE: 20250101
